FAERS Safety Report 8812163 (Version 2)
Quarter: 2012Q4

REPORT INFORMATION
  Report Type: 
  Country: US (occurrence: US)
  Receive Date: 20120927
  Receipt Date: 20121021
  Transmission Date: 20130627
  Serious: Yes (Death, Other)
  Sender: FDA-Public Use
  Company Number: US-ROCHE-1128024

PATIENT
  Sex: Female

DRUGS (3)
  1. AVASTIN [Suspect]
     Indication: MALIGNANT RESPIRATORY TRACT NEOPLASM
     Route: 065
  2. CARBOPLATIN [Concomitant]
  3. GEMZAR [Concomitant]

REACTIONS (3)
  - Metastases to liver [Unknown]
  - Lymphadenopathy [Unknown]
  - Death [Fatal]
